FAERS Safety Report 6249926-7 (Version None)
Quarter: 2009Q2

REPORT INFORMATION
  Report Type: 
  Country: None (occurrence: None)
  Receive Date: 20090629
  Receipt Date: 20090623
  Transmission Date: 20091009
  Serious: Yes (Death, Hospitalization, Other)
  Sender: FDA-Public Use
  Company Number: US-WYE-H09443009

PATIENT
  Sex: Female
  Weight: 67 kg

DRUGS (18)
  1. TEMSIROLIMUS [Suspect]
     Indication: ENDOMETRIAL CANCER
     Route: 042
     Dates: start: 20090122, end: 20090206
  2. TEMSIROLIMUS [Suspect]
     Dosage: 20 MG ON DAY 1
     Route: 042
     Dates: start: 20090416, end: 20090416
  3. TEMSIROLIMUS [Suspect]
     Dosage: 20 MG ON DAY 8
     Route: 042
     Dates: start: 20090423, end: 20090423
  4. TEMSIROLIMUS [Suspect]
     Dosage: 20 MG ON DAY 15
     Route: 042
     Dates: start: 20090430, end: 20090430
  5. TEMSIROLIMUS [Suspect]
     Route: 042
     Dates: start: 20090219, end: 20090219
  6. TEMSIROLIMUS [Suspect]
     Route: 042
     Dates: start: 20090319, end: 20090319
  7. TEMSIROLIMUS [Suspect]
     Route: 042
     Dates: start: 20090226, end: 20090226
  8. TEMSIROLIMUS [Suspect]
     Route: 042
     Dates: start: 20090305, end: 20090305
  9. TEMSIROLIMUS [Suspect]
     Route: 042
     Dates: start: 20090312, end: 20090312
  10. WARFARIN SODIUM [Concomitant]
  11. METHYLPREDNISOLONE [Concomitant]
  12. BEVACIZUMAB [Suspect]
     Indication: ENDOMETRIAL CANCER
     Route: 042
     Dates: start: 20090122, end: 20090206
  13. BEVACIZUMAB [Suspect]
     Dosage: 10 MG/KG (670 MG RECEIVED ON DAY 1)
     Route: 042
     Dates: start: 20090416, end: 20090416
  14. BEVACIZUMAB [Suspect]
     Dosage: 10 MG/KG (670 MG GIVEN ON DAY 15)
     Route: 042
     Dates: start: 20090430, end: 20090430
  15. BEVACIZUMAB [Suspect]
     Route: 042
     Dates: start: 20090219, end: 20090219
  16. BEVACIZUMAB [Suspect]
     Route: 042
     Dates: start: 20090319, end: 20090319
  17. BEVACIZUMAB [Suspect]
     Route: 042
     Dates: start: 20090305, end: 20090305
  18. HEPARIN [Concomitant]

REACTIONS (7)
  - CARDIAC ARREST [None]
  - HEADACHE [None]
  - INTERNATIONAL NORMALISED RATIO INCREASED [None]
  - PAIN IN JAW [None]
  - PERICARDIAL EFFUSION [None]
  - PROTHROMBIN TIME PROLONGED [None]
  - VISION BLURRED [None]
